FAERS Safety Report 8219998-9 (Version None)
Quarter: 2012Q1

REPORT INFORMATION
  Report Type: 
  Country: None (occurrence: None)
  Receive Date: 20120315
  Receipt Date: 20120302
  Transmission Date: 20120608
  Serious: Yes (Hospitalization, Other)
  Sender: FDA-Public Use
  Company Number: 2012MA002853

PATIENT
  Sex: Male

DRUGS (2)
  1. PNEUMONIA VACCINE [Concomitant]
  2. DIGOXIN [Suspect]
     Dosage: 0.125 MG; PO
     Route: 048
     Dates: start: 20060301, end: 20080601

REACTIONS (8)
  - INTERNATIONAL NORMALISED RATIO INCREASED [None]
  - PROTHROMBIN TIME PROLONGED [None]
  - PAIN [None]
  - ANXIETY [None]
  - ACTIVATED PARTIAL THROMBOPLASTIN TIME PROLONGED [None]
  - HEART INJURY [None]
  - UNEVALUABLE EVENT [None]
  - ECONOMIC PROBLEM [None]
